FAERS Safety Report 24569467 (Version 3)
Quarter: 2024Q4

REPORT INFORMATION
  Report Type: Report from Study
  Country: CO (occurrence: CO)
  Receive Date: 20241031
  Receipt Date: 20241220
  Transmission Date: 20250115
  Serious: Yes (Hospitalization, Other)
  Sender: MYLAN
  Company Number: CO-MYLANLABS-2024M1098609

PATIENT
  Age: 3 Year
  Sex: Female
  Weight: 7 kg

DRUGS (9)
  1. CYSTAGON [Suspect]
     Active Substance: CYSTEAMINE BITARTRATE
     Indication: Cystinosis
     Dosage: 150 MILLIGRAM, Q6H (DILUTE 1 CAPSULE IN 10CC WATER, ADMINISTER 9CC EVERY 6 HOURS)
     Route: 048
     Dates: start: 20240425
  2. CYSTEAMINE HYDROCHLORIDE [Suspect]
     Active Substance: CYSTEAMINE HYDROCHLORIDE
     Indication: Cystinosis
     Dosage: 1 GTT DROPS, Q6H (EVERY 6 HOURS)
     Route: 047
     Dates: start: 20240425
  3. CALCIUM\VITAMIN D [Concomitant]
     Active Substance: CALCIUM\VITAMIN D
     Indication: Vitamin supplementation
     Dosage: 400 MILLIGRAM, QD (PER DAY)
     Route: 065
  4. POTASSIUM CITRATE [Concomitant]
     Active Substance: POTASSIUM CITRATE
     Indication: Vitamin supplementation
     Dosage: 10 CC/ 3 TIMES A DAY, TID
     Route: 065
  5. POTASSIUM CITRATE [Concomitant]
     Active Substance: POTASSIUM CITRATE
     Dosage: 10.8 PERCENT
     Route: 065
  6. CALCITRIOL [Concomitant]
     Active Substance: CALCITRIOL
     Indication: Vitamin supplementation
     Dosage: 0.58 MICROGRAM, QD (PER DAY)
     Route: 065
  7. CALCITRIOL [Concomitant]
     Active Substance: CALCITRIOL
     Dosage: 0.25 MICROGRAM, QD (DAY)
     Route: 065
  8. POTASSIUM GLUCONATE [Concomitant]
     Active Substance: POTASSIUM GLUCONATE
     Indication: Vitamin supplementation
     Dosage: (3 CC/3 TIMES A DAY), TID
     Route: 065
  9. CALCIUM BICARBONATE [Concomitant]
     Active Substance: CALCIUM BICARBONATE
     Indication: Vitamin supplementation
     Dosage: 600 MILLIGRAM, QD (DAY)
     Route: 065

REACTIONS (8)
  - Pneumonia bacterial [Recovering/Resolving]
  - Chronic obstructive pulmonary disease [Unknown]
  - Dehydration [Not Recovered/Not Resolved]
  - Urinary retention [Not Recovered/Not Resolved]
  - Vomiting [Not Recovered/Not Resolved]
  - Diarrhoea [Not Recovered/Not Resolved]
  - Decreased appetite [Unknown]
  - Amino acid level increased [Not Recovered/Not Resolved]

NARRATIVE: CASE EVENT DATE: 20240101
